FAERS Safety Report 18692168 (Version 3)
Quarter: 2021Q1

REPORT INFORMATION
  Report Type: Spontaneous
  Country: US (occurrence: US)
  Receive Date: 20210102
  Receipt Date: 20210119
  Transmission Date: 20210419
  Serious: No
  Sender: FDA-Public Use
  Company Number: US-ASTRAZENECA-2020SF70837

PATIENT
  Sex: Female
  Weight: 64 kg

DRUGS (1)
  1. BYDUREON BCISE [Suspect]
     Active Substance: EXENATIDE
     Indication: TYPE 2 DIABETES MELLITUS
     Route: 058

REACTIONS (10)
  - Blood glucose abnormal [Unknown]
  - Injection site pain [Unknown]
  - Product dose omission issue [Unknown]
  - Device leakage [Unknown]
  - Incorrect dose administered by device [Unknown]
  - Sensitive skin [Unknown]
  - Frustration tolerance decreased [Unknown]
  - Diabetes mellitus inadequate control [Unknown]
  - Device issue [Unknown]
  - Injection site mass [Unknown]
